FAERS Safety Report 11644764 (Version 2)
Quarter: 2015Q4

REPORT INFORMATION
  Report Type: Spontaneous
  Country: US (occurrence: US)
  Receive Date: 20151020
  Receipt Date: 20151218
  Transmission Date: 20160304
  Serious: Yes (Other)
  Sender: FDA-Public Use
  Company Number: US-BAYER-2015-443219

PATIENT
  Age: 56 Year
  Sex: Female

DRUGS (2)
  1. BETASERON [Suspect]
     Active Substance: INTERFERON BETA-1B
     Indication: MULTIPLE SCLEROSIS
     Dosage: 0.25 MG, QOD
     Route: 058
  2. CIPROFLOXACIN. [Concomitant]
     Active Substance: CIPROFLOXACIN

REACTIONS (3)
  - Depression [None]
  - Wrist fracture [Recovering/Resolving]
  - Fall [None]

NARRATIVE: CASE EVENT DATE: 201509
